FAERS Safety Report 5125741-2 (Version None)
Quarter: 2006Q4

REPORT INFORMATION
  Report Type: 
  Country: None (occurrence: None)
  Receive Date: 20061012
  Receipt Date: 20060227
  Transmission Date: 20070319
  Serious: Yes (Life-Threatening, Hospitalization)
  Sender: FDA-Public Use
  Company Number: HQWYE048928FEB06

PATIENT
  Sex: Female
  Weight: 47 kg

DRUGS (15)
  1. ENBREL [Suspect]
     Indication: RHEUMATOID ARTHRITIS
     Route: 058
     Dates: start: 20050415, end: 20060707
  2. PREDONINE [Suspect]
     Indication: RHEUMATOID ARTHRITIS
     Route: 065
  3. ACTONEL [Concomitant]
     Indication: OSTEOPOROSIS
     Route: 048
     Dates: start: 20030114, end: 20051027
  4. ISCOTIN [Concomitant]
     Indication: ANTIBIOTIC PROPHYLAXIS
     Dates: start: 20021119, end: 20060721
  5. DOXAZOSIN MESYLATE [Concomitant]
     Indication: HYPERTENSION
     Route: 048
     Dates: start: 20050104, end: 20060428
  6. SINGULAIR [Concomitant]
     Route: 048
     Dates: start: 20050422, end: 20060901
  7. BENET [Concomitant]
  8. BLOPRESS [Concomitant]
  9. HYPEN [Concomitant]
  10. OMEPRAZON [Concomitant]
  11. BACTRIM [Concomitant]
  12. ASPARTATE CALCIUM [Concomitant]
  13. CARBAZOCHROME SODIUM SULFONATE [Concomitant]
  14. PROGRAF [Concomitant]
     Indication: RHEUMATOID ARTHRITIS
     Route: 048
     Dates: start: 20051028, end: 20060623
  15. NEORAL [Concomitant]
     Indication: RHEUMATOID ARTHRITIS
     Route: 048
     Dates: start: 20041029, end: 20051024

REACTIONS (6)
  - LUMBAR SPINAL STENOSIS [None]
  - OXYGEN SATURATION DECREASED [None]
  - PULMONARY CONGESTION [None]
  - RENAL FAILURE ACUTE [None]
  - SEPTIC SHOCK [None]
  - WHITE BLOOD CELL COUNT INCREASED [None]
